FAERS Safety Report 20528719 (Version 1)
Quarter: 2022Q1

REPORT INFORMATION
  Report Type: Spontaneous
  Country: US (occurrence: US)
  Receive Date: 20220228
  Receipt Date: 20220228
  Transmission Date: 20220423
  Serious: Yes (Other)
  Sender: FDA-Public Use
  Company Number: US-NOVARTISPH-NVSC2022US047778

PATIENT
  Age: 41 Year
  Sex: Male

DRUGS (3)
  1. RANITIDINE [Suspect]
     Active Substance: RANITIDINE
     Indication: Gastrooesophageal reflux disease
     Dosage: 150 MG,300 MG,,DAILY,2X DAILY; USED INTERCHANGEABLY WITH ZANTAC
     Route: 048
     Dates: start: 199801, end: 200712
  2. RANITIDINE [Suspect]
     Active Substance: RANITIDINE
     Indication: Gastrooesophageal reflux disease
     Dosage: 150 MG,300 MG,,DAILY,2X DAILY; USED INTERCHANGEABLY WITH ZANTAC
     Route: 048
     Dates: start: 199801, end: 200712
  3. RANITIDINE [Suspect]
     Active Substance: RANITIDINE
     Indication: Gastrooesophageal reflux disease
     Dosage: 150 MG,DAILY,1-2 TIMES DAILY; USED INTERCHANGEABLY WITH ZANTAC
     Route: 048
     Dates: start: 199801, end: 200712

REACTIONS (2)
  - Prostate cancer [Recovering/Resolving]
  - Incorrect dose administered [Unknown]

NARRATIVE: CASE EVENT DATE: 20080601
